FAERS Safety Report 7587543-7 (Version None)
Quarter: 2011Q3

REPORT INFORMATION
  Report Type: 
  Country: None (occurrence: None)
  Receive Date: 20110704
  Receipt Date: 20110620
  Transmission Date: 20111222
  Serious: Yes (Hospitalization, Other)
  Sender: FDA-Public Use
  Company Number: PHHY2011JP45794

PATIENT
  Sex: Female

DRUGS (6)
  1. ADALAT CC [Concomitant]
     Indication: HYPERTENSION
     Dosage: 20 MG, UNK
     Route: 048
     Dates: start: 20110225
  2. ADALAT CC [Concomitant]
     Dosage: 40 MG, UNK
     Dates: end: 20110227
  3. RASILEZ [Suspect]
     Indication: HYPERTENSION
     Dosage: 150 MG, UNK
     Route: 048
     Dates: start: 20110225, end: 20110302
  4. ALDACTONE [Concomitant]
     Indication: HYPERTENSION
     Dosage: 12.5 MG, UNK
     Route: 048
  5. ALDOMET [Concomitant]
     Indication: HYPERTENSION
     Dosage: 750 MG, UNK
     Route: 048
     Dates: start: 20110225, end: 20110227
  6. OLMESARTAN MEDOXOMIL [Concomitant]
     Dosage: 40 MG, UNK
     Route: 048
     Dates: start: 20110308

REACTIONS (8)
  - RENAL FAILURE [None]
  - OLIGURIA [None]
  - DYSPNOEA EXERTIONAL [None]
  - HAEMOGLOBIN DECREASED [None]
  - BLOOD UREA INCREASED [None]
  - PLEURAL EFFUSION [None]
  - URINE OUTPUT INCREASED [None]
  - BLOOD CREATININE INCREASED [None]
